FAERS Safety Report 4590853-9 (Version None)
Quarter: 2005Q1

REPORT INFORMATION
  Report Type: 
  Country: None (occurrence: None)
  Receive Date: 20050225
  Receipt Date: 20050131
  Transmission Date: 20050727
  Serious: Yes (Hospitalization)
  Sender: FDA-Public Use
  Company Number: PHHO2005CA01914

PATIENT
  Age: 54 Year
  Sex: Male

DRUGS (4)
  1. CLOZARIL [Suspect]
     Dosage: TITRATED TO 150MG
     Route: 048
     Dates: start: 20050107, end: 20050207
  2. VALPROIC ACID [Concomitant]
  3. HALDOL [Concomitant]
  4. COGENTIN [Concomitant]

REACTIONS (5)
  - BLOOD ALKALINE PHOSPHATASE INCREASED [None]
  - DIARRHOEA [None]
  - EOSINOPHIL COUNT INCREASED [None]
  - GASTRITIS [None]
  - VIRAL INFECTION [None]
